FAERS Safety Report 8200244-7 (Version None)
Quarter: 2012Q1

REPORT INFORMATION
  Report Type: 
  Country: None (occurrence: None)
  Receive Date: 20120309
  Receipt Date: 20120309
  Transmission Date: 20120608
  Serious: Yes (Other)
  Sender: FDA-Public Use
  Company Number: None

PATIENT
  Sex: Female
  Weight: 60.3284 kg

DRUGS (1)
  1. OXYCONTIN [Suspect]
     Indication: SURGERY
     Dosage: 20MG 3X PER DAY 3 TIME DAILY
     Dates: start: 19990101, end: 20120301

REACTIONS (3)
  - DRUG INEFFECTIVE [None]
  - PRODUCT SIZE ISSUE [None]
  - PRODUCT PHYSICAL ISSUE [None]
